FAERS Safety Report 8506938-8 (Version None)
Quarter: 2012Q3

REPORT INFORMATION
  Report Type: 
  Country: None (occurrence: None)
  Receive Date: 20120712
  Receipt Date: 20120706
  Transmission Date: 20120928
  Serious: Yes (Other)
  Sender: FDA-Public Use
  Company Number: US-JNJFOC-20120703606

PATIENT
  Age: 64 Year
  Sex: Female
  Weight: 70.31 kg

DRUGS (2)
  1. ROGAINE (FOR WOMEN) [Suspect]
     Indication: ALOPECIA
     Dosage: ONE AND HALF DROPPER
     Route: 061
     Dates: start: 20100101
  2. ROGAINE (FOR WOMEN) [Suspect]
     Route: 061

REACTIONS (4)
  - HAIR GROWTH ABNORMAL [None]
  - ALOPECIA [None]
  - UNDERDOSE [None]
  - BREAST CANCER [None]
